FAERS Safety Report 5920428-8 (Version None)
Quarter: 2008Q4

REPORT INFORMATION
  Report Type: 
  Country: None (occurrence: None)
  Receive Date: 20081014
  Receipt Date: 20080930
  Transmission Date: 20090506
  Serious: Yes (Death, Hospitalization, Other)
  Sender: FDA-Public Use
  Company Number: 53038

PATIENT
  Age: 21 Year
  Sex: Female

DRUGS (2)
  1. BLEOMYCIN FOR INJ. USP 15 UNITS-BEDFORD LABS, INC. [Suspect]
     Indication: HAEMATOLOGICAL MALIGNANCY
  2. ADRIAMYCIN PFS [Suspect]

REACTIONS (6)
  - FEBRILE NEUTROPENIA [None]
  - GENERAL PHYSICAL HEALTH DETERIORATION [None]
  - HYPOTENSION [None]
  - MALARIA [None]
  - NO THERAPEUTIC RESPONSE [None]
  - RENAL FAILURE [None]
